FAERS Safety Report 6080308-7 (Version None)
Quarter: 2009Q1

REPORT INFORMATION
  Report Type: 
  Country: None (occurrence: None)
  Receive Date: 20090217
  Receipt Date: 20090207
  Transmission Date: 20090719
  Serious: Yes (Disabling)
  Sender: FDA-Public Use
  Company Number: US-PFIZER INC-2008154669

PATIENT
  Sex: Female
  Weight: 68.027 kg

DRUGS (1)
  1. CELEBREX [Suspect]
     Indication: POSTOPERATIVE ANALGESIA
     Dosage: 200 MG, 2X/DAY
     Dates: start: 20080821, end: 20080101

REACTIONS (1)
  - IMPAIRED HEALING [None]
